FAERS Safety Report 6883921-X (Version None)
Quarter: 2010Q3

REPORT INFORMATION
  Report Type: 
  Country: None (occurrence: None)
  Receive Date: 20100729
  Receipt Date: 20100721
  Transmission Date: 20110219
  Serious: Yes (Hospitalization)
  Sender: FDA-Public Use
  Company Number: JP-SANOFI-AVENTIS-2010SA043334

PATIENT
  Age: 73 Year
  Sex: Female

DRUGS (8)
  1. ELPLAT [Suspect]
     Indication: COLON CANCER METASTATIC
     Route: 041
     Dates: start: 20090630, end: 20090630
  2. ELPLAT [Suspect]
     Route: 041
     Dates: start: 20090811, end: 20090811
  3. AVASTIN [Suspect]
     Indication: COLON CANCER METASTATIC
     Route: 041
     Dates: start: 20090630, end: 20090630
  4. AVASTIN [Suspect]
     Route: 041
     Dates: start: 20090909, end: 20090909
  5. CALCIUM LEVOFOLINATE [Suspect]
     Indication: COLON CANCER METASTATIC
     Route: 041
     Dates: start: 20090630, end: 20090701
  6. CALCIUM LEVOFOLINATE [Suspect]
     Route: 041
     Dates: start: 20090926, end: 20090927
  7. FLUOROURACIL [Suspect]
     Indication: COLON CANCER METASTATIC
     Route: 041
     Dates: start: 20090630, end: 20090702
  8. FLUOROURACIL [Suspect]
     Route: 041
     Dates: start: 20090926, end: 20090928

REACTIONS (1)
  - LIVER ABSCESS [None]
